FAERS Safety Report 24701894 (Version 4)
Quarter: 2025Q3

REPORT INFORMATION
  Report Type: Spontaneous
  Country: US (occurrence: US)
  Receive Date: 20241205
  Receipt Date: 20250702
  Transmission Date: 20251021
  Serious: No
  Sender: SANOFI AVENTIS
  Company Number: US-SA-2024SA358481

PATIENT
  Age: 24 Year
  Sex: Female

DRUGS (4)
  1. DUPIXENT [Suspect]
     Active Substance: DUPILUMAB
     Indication: Dermatitis atopic
     Route: 058
     Dates: start: 20241010, end: 20241010
  2. DUPIXENT [Suspect]
     Active Substance: DUPILUMAB
     Indication: Eczema
     Dosage: 300 MG, QOW
     Route: 058
     Dates: start: 202410
  3. DESONIDE [Concomitant]
     Active Substance: DESONIDE
  4. TACROLIMUS [Concomitant]
     Active Substance: TACROLIMUS

REACTIONS (10)
  - Activities of daily living decreased [Unknown]
  - Mood altered [Unknown]
  - Emotional disorder [Unknown]
  - Pruritus [Unknown]
  - Eczema [Recovering/Resolving]
  - Urticaria [Recovering/Resolving]
  - Rash [Recovering/Resolving]
  - Pruritus [Recovering/Resolving]
  - Sleep disorder due to a general medical condition [Unknown]
  - Dermatitis atopic [Unknown]

NARRATIVE: CASE EVENT DATE: 20240101
